FAERS Safety Report 24940811 (Version 2)
Quarter: 2025Q1

REPORT INFORMATION
  Report Type: Other
  Country: GB (occurrence: GB)
  Receive Date: 20250207
  Receipt Date: 20250301
  Transmission Date: 20250409
  Serious: Yes (Other)
  Sender: STRIDES
  Company Number: GB-002147023-NVSC2025GB010560

PATIENT
  Sex: Female

DRUGS (13)
  1. METHOTREXATE [Suspect]
     Active Substance: METHOTREXATE
     Indication: Product used for unknown indication
     Route: 065
  2. PREDNISOLONE [Suspect]
     Active Substance: PREDNISOLONE
     Indication: Product used for unknown indication
     Route: 065
  3. PREDNISOLONE [Suspect]
     Active Substance: PREDNISOLONE
     Route: 065
  4. CYCLOSPORINE [Suspect]
     Active Substance: CYCLOSPORINE
     Indication: Product used for unknown indication
     Route: 065
  5. XOLAIR [Suspect]
     Active Substance: OMALIZUMAB
     Indication: Chronic spontaneous urticaria
     Route: 065
  6. XOLAIR [Suspect]
     Active Substance: OMALIZUMAB
     Indication: Angioedema
  7. RITUXIMAB [Suspect]
     Active Substance: RITUXIMAB
     Indication: Product used for unknown indication
     Route: 065
  8. ANAKINRA [Suspect]
     Active Substance: ANAKINRA
     Indication: Product used for unknown indication
     Route: 065
  9. ANAKINRA [Suspect]
     Active Substance: ANAKINRA
     Route: 065
  10. TOFACITINIB [Suspect]
     Active Substance: TOFACITINIB
     Indication: Product used for unknown indication
     Route: 065
  11. TOFACITINIB [Suspect]
     Active Substance: TOFACITINIB
     Route: 065
  12. REMIBRUTINIB [Suspect]
     Active Substance: REMIBRUTINIB
     Indication: Angioedema
     Route: 065
  13. REMIBRUTINIB [Suspect]
     Active Substance: REMIBRUTINIB
     Indication: Chronic spontaneous urticaria
     Route: 065

REACTIONS (6)
  - Angioedema [Unknown]
  - Mental disorder due to a general medical condition [Unknown]
  - Condition aggravated [Unknown]
  - Chronic spontaneous urticaria [Unknown]
  - Treatment failure [Unknown]
  - Drug intolerance [Unknown]
